FAERS Safety Report 16189898 (Version 1)
Quarter: 2019Q2

REPORT INFORMATION
  Report Type: Spontaneous
  Country: DE (occurrence: DE)
  Receive Date: 20190412
  Receipt Date: 20190412
  Transmission Date: 20190711
  Serious: Yes (Hospitalization, Other)
  Sender: FDA-Public Use
  Company Number: DE-009507513-1904DEU004544

PATIENT
  Age: 92 Year
  Sex: Female

DRUGS (6)
  1. BRIMONIDINE TARTRATE. [Concomitant]
     Active Substance: BRIMONIDINE TARTRATE
     Indication: GLAUCOMA
     Dosage: 1-0-1
  2. LATANO VISION [Concomitant]
     Indication: GLAUCOMA
     Dosage: 0-0-1
  3. CANDESARTAN. [Concomitant]
     Active Substance: CANDESARTAN
     Dosage: 0.5-0-0.5; INTAKE ALREADY FOR SOME TIME
     Route: 048
     Dates: end: 20190118
  4. JANUVIA [Suspect]
     Active Substance: SITAGLIPTIN PHOSPHATE
     Indication: TYPE 2 DIABETES MELLITUS
     Dosage: 1-0-0
     Route: 048
     Dates: start: 20190103, end: 20190118
  5. DORZOLAMIDE HYDROCHLORIDE. [Concomitant]
     Active Substance: DORZOLAMIDE HYDROCHLORIDE
     Indication: GLAUCOMA
     Dosage: 3X DAILY ON THE LEFT
  6. CEFTRIAXONE. [Concomitant]
     Active Substance: CEFTRIAXONE
     Indication: URINARY TRACT INFECTION
     Dosage: UNK
     Route: 042
     Dates: start: 20190121

REACTIONS (6)
  - Pyrexia [Recovering/Resolving]
  - Transaminases increased [Recovering/Resolving]
  - Lipase increased [Recovering/Resolving]
  - Abdominal pain lower [Recovering/Resolving]
  - Hepatic enzyme increased [Recovering/Resolving]
  - Hepatic failure [Recovering/Resolving]

NARRATIVE: CASE EVENT DATE: 20190118
